FAERS Safety Report 7595373-5 (Version None)
Quarter: 2011Q2

REPORT INFORMATION
  Report Type: 
  Country: None (occurrence: None)
  Receive Date: 20110620
  Receipt Date: 20110516
  Transmission Date: 20111010
  Serious: Yes (Hospitalization)
  Sender: FDA-Public Use
  Company Number: UTC-007159

PATIENT
  Age: 68 Year
  Sex: Female
  Weight: 63.6 kg

DRUGS (5)
  1. COUMADIN [Concomitant]
  2. ASPIRIN [Concomitant]
  3. TYVASO [Suspect]
     Indication: COR PULMONALE CHRONIC
     Dosage: 168 MCG (42 MCG, 4 IN 1 D). INHALATION
     Route: 055
     Dates: start: 20100408
  4. LETAIRIS [Concomitant]
  5. DIURETICS [Concomitant]

REACTIONS (2)
  - PULMONARY ARTERIAL HYPERTENSION [None]
  - COUGH [None]
